FAERS Safety Report 8983784 (Version 4)
Quarter: 2013Q1

REPORT INFORMATION
  Report Type: Report from Study
  Country: US (occurrence: US)
  Receive Date: 20121224
  Receipt Date: 20130208
  Transmission Date: 20140127
  Serious: Yes (Hospitalization)
  Sender: FDA-Public Use
  Company Number: US-ROCHE-1169610

PATIENT
  Age: 59 Year
  Sex: Male

DRUGS (4)
  1. PEGASYS [Suspect]
     Indication: CHRONIC HEPATITIS C
     Route: 058
     Dates: start: 20121114
  2. RIBAVIRIN [Suspect]
     Indication: CHRONIC HEPATITIS C
     Route: 065
     Dates: start: 20121114
  3. RIBAVIRIN [Suspect]
     Route: 065
     Dates: end: 2005
  4. TELAPREVIR [Suspect]
     Indication: CHRONIC HEPATITIS C
     Route: 065

REACTIONS (5)
  - Oedema peripheral [Unknown]
  - Pain in extremity [Unknown]
  - Anaemia [Unknown]
  - Chest pain [Unknown]
  - Dyspnoea [Unknown]
